FAERS Safety Report 7360633-X (Version None)
Quarter: 2011Q1

REPORT INFORMATION
  Report Type: 
  Country: None (occurrence: None)
  Receive Date: 20110318
  Receipt Date: 20100525
  Transmission Date: 20110831
  Serious: Yes (Hospitalization)
  Sender: FDA-Public Use
  Company Number: US-BAYER-200943377NA

PATIENT
  Sex: Female
  Weight: 124 kg

DRUGS (23)
  1. AMLODIPINE [Concomitant]
  2. HYDROCHLOROTHIAZIDE [Concomitant]
  3. METFORMIN HCL [Concomitant]
     Indication: DIABETES MELLITUS
     Dates: start: 20090101
  4. NOVOLOG [Concomitant]
  5. RANITIDINE [Concomitant]
     Dates: start: 20090101
  6. SUCRALFATE [Concomitant]
     Dates: start: 20071101, end: 20071201
  7. UNCODEABLE ^UNCLASSIFIABLE^ [Concomitant]
  8. BENICAR [Concomitant]
     Dates: start: 20070101
  9. LANTUS [Concomitant]
     Indication: DIABETES MELLITUS
     Dates: start: 20070101
  10. CIPROFLOXACIN [Concomitant]
     Dates: start: 20080101
  11. SULFAMETHOXAZOLE AND TRIMETHOPRIM DOUBLE STRENGTH [Concomitant]
     Dates: start: 20080101
  12. LISINOPRIL HYDROCHLORTHIAZID [Concomitant]
     Dates: start: 20070101
  13. LEVEMIR [Concomitant]
  14. YAZ [Suspect]
     Dates: start: 20070501, end: 20071215
  15. YASMIN [Suspect]
     Indication: ORAL CONTRACEPTION
     Dosage: UNK UNK, QD
  16. DYNACIRC [Concomitant]
     Dates: start: 20070101
  17. HUMALOG [Concomitant]
     Indication: DIABETES MELLITUS
     Dates: start: 20070101
  18. LISINOPRIL [Concomitant]
     Dates: start: 20070101
  19. CARAFATE [Concomitant]
  20. DOXYCYCLINE [Concomitant]
     Dates: start: 20070101
  21. OMEPRAZOLE [Concomitant]
  22. PRILOSEC [Concomitant]
     Indication: DYSPEPSIA
     Dates: start: 20070101, end: 20080101
  23. VALTREX [Concomitant]

REACTIONS (8)
  - DEEP VEIN THROMBOSIS [None]
  - OEDEMA PERIPHERAL [None]
  - ABDOMINAL PAIN [None]
  - VOMITING [None]
  - CHOLELITHIASIS [None]
  - NAUSEA [None]
  - GASTROINTESTINAL PAIN [None]
  - PAIN IN EXTREMITY [None]
